FAERS Safety Report 23320178 (Version 1)
Quarter: 2023Q4

REPORT INFORMATION
  Report Type: Spontaneous
  Country: JP (occurrence: JP)
  Receive Date: 20231220
  Receipt Date: 20231220
  Transmission Date: 20240110
  Serious: Yes (Other)
  Sender: FDA-Public Use
  Company Number: JP-ASTELLAS-2023JP013900

PATIENT
  Sex: Male

DRUGS (10)
  1. MIRABEGRON [Suspect]
     Active Substance: MIRABEGRON
     Indication: Product used for unknown indication
     Dosage: UNK UNK, UNKNOWN FREQ.
     Route: 048
  2. MIRABEGRON [Suspect]
     Active Substance: MIRABEGRON
     Dosage: ADDITIONALLY ADMINISTERED, AS NEEDED
     Route: 048
  3. MIRABEGRON [Suspect]
     Active Substance: MIRABEGRON
     Route: 048
  4. MIRABEGRON [Suspect]
     Active Substance: MIRABEGRON
     Route: 048
  5. SYMMETREL [Concomitant]
     Active Substance: AMANTADINE HYDROCHLORIDE
     Indication: Analgesic therapy
     Dosage: UNK UNK, UNKNOWN FREQ.
     Route: 065
  6. SILDENAFIL CITRATE [Concomitant]
     Active Substance: SILDENAFIL CITRATE
     Indication: Pulmonary hypertension
     Route: 048
  7. SILDENAFIL CITRATE [Concomitant]
     Active Substance: SILDENAFIL CITRATE
     Route: 048
     Dates: start: 2011
  8. IMIDAFENACIN [Concomitant]
     Active Substance: IMIDAFENACIN
     Indication: Pollakiuria
     Dosage: UNK UNK, UNKNOWN FREQ.
     Route: 048
  9. SELEGILINE HYDROCHLORIDE [Concomitant]
     Active Substance: SELEGILINE HYDROCHLORIDE
     Indication: Pollakiuria
     Dosage: UNK UNK, UNKNOWN FREQ.
     Route: 048
  10. CARBIDOPA\LEVODOPA [Concomitant]
     Active Substance: CARBIDOPA\LEVODOPA
     Indication: Parkinsonism
     Dosage: UNK UNK, UNKNOWN FREQ.
     Route: 065

REACTIONS (16)
  - Sjogren^s syndrome [Unknown]
  - Parkinsonism [Unknown]
  - Pollakiuria [Recovering/Resolving]
  - Intelligence increased [Unknown]
  - Therapeutic response unexpected [Unknown]
  - Fibromyalgia [Unknown]
  - Chronic fatigue syndrome [Unknown]
  - Anal incontinence [Unknown]
  - Thirst [Unknown]
  - Diarrhoea [Unknown]
  - Loose tooth [Unknown]
  - Urinary incontinence [Unknown]
  - Hypermetropia [Unknown]
  - Abnormal sensation in eye [Unknown]
  - Product use issue [Unknown]
  - Intentional overdose [Unknown]
